FAERS Safety Report 24282081 (Version 1)
Quarter: 2024Q3

REPORT INFORMATION
  Report Type: Spontaneous
  Country: US (occurrence: None)
  Receive Date: 20240903
  Receipt Date: 20240903
  Transmission Date: 20241017
  Serious: Yes (Disabling)
  Sender: Public
  Company Number: None

PATIENT
  Age: 60 Year
  Sex: Female
  Weight: 60.75 kg

DRUGS (1)
  1. BOTOX [Suspect]
     Active Substance: ONABOTULINUMTOXINA
     Indication: Migraine
     Dates: start: 20240529

REACTIONS (7)
  - Dysphonia [None]
  - Vision blurred [None]
  - Dysphonia [None]
  - Speech disorder [None]
  - Dyspnoea [None]
  - Asthenia [None]
  - Dermatochalasis [None]

NARRATIVE: CASE EVENT DATE: 20240529
